FAERS Safety Report 18652230 (Version 2)
Quarter: 2020Q4

REPORT INFORMATION
  Report Type: Spontaneous
  Country: US (occurrence: US)
  Receive Date: 20201222
  Receipt Date: 20201229
  Transmission Date: 20210114
  Serious: Yes (Life-Threatening, Hospitalization)
  Sender: FDA-Public Use
  Company Number: US-ELI_LILLY_AND_COMPANY-US202012009602

PATIENT
  Age: 67 Year
  Sex: Female

DRUGS (3)
  1. ZOFRAN [Concomitant]
     Active Substance: ONDANSETRON HYDROCHLORIDE
     Indication: PRODUCT USED FOR UNKNOWN INDICATION
  2. FAMOTIDINE. [Concomitant]
     Active Substance: FAMOTIDINE
     Indication: PRODUCT USED FOR UNKNOWN INDICATION
  3. BAMLANIVIMAB. [Suspect]
     Active Substance: BAMLANIVIMAB
     Indication: COVID-19
     Dosage: 700 MG, SINGLE
     Route: 042
     Dates: start: 20201204, end: 20201204

REACTIONS (15)
  - Liver disorder [Unknown]
  - Pneumonia [Unknown]
  - Lung opacity [Unknown]
  - Dyspnoea [Unknown]
  - Vomiting [Unknown]
  - Lung infiltration [Unknown]
  - Pleural thickening [Unknown]
  - Dyspnoea exertional [Unknown]
  - Bradycardia [Unknown]
  - Blood pressure abnormal [Unknown]
  - Chest pain [Unknown]
  - Pulmonary embolism [Recovering/Resolving]
  - Pleural effusion [Unknown]
  - Cardiac arrest [Recovered/Resolved]
  - Oxygen saturation decreased [Unknown]

NARRATIVE: CASE EVENT DATE: 20201209
